FAERS Safety Report 23275015 (Version 1)
Quarter: 2023Q4

REPORT INFORMATION
  Report Type: Report from Study
  Country: US (occurrence: US)
  Receive Date: 20231208
  Receipt Date: 20231208
  Transmission Date: 20240109
  Serious: Yes (Other)
  Sender: FDA-Public Use
  Company Number: US-002147023-NVSC2023US257562

PATIENT
  Sex: Male

DRUGS (1)
  1. ENTRESTO [Suspect]
     Active Substance: SACUBITRIL\VALSARTAN
     Indication: Product used for unknown indication
     Dosage: 97/103 MG, BID
     Route: 048

REACTIONS (5)
  - Atrial fibrillation [Unknown]
  - Sciatica [Unknown]
  - Back pain [Unknown]
  - Injection site pain [Unknown]
  - Arthritis [Unknown]
